FAERS Safety Report 5482016-X (Version None)
Quarter: 2007Q4

REPORT INFORMATION
  Report Type: 
  Country: None (occurrence: None)
  Receive Date: 20071005
  Receipt Date: 20070920
  Transmission Date: 20080405
  Serious: Yes (Other)
  Sender: FDA-Public Use
  Company Number: 07-001930

PATIENT
  Age: 18 Year
  Sex: Female
  Weight: 56.7 kg

DRUGS (3)
  1. DORYX [Suspect]
     Indication: ACNE
     Dosage: 100 MG, BID, ORAL
     Route: 048
     Dates: start: 20070101, end: 20070101
  2. YASMIN [Concomitant]
  3. UNSPECIFIED TOPICAL AGENTS [Concomitant]

REACTIONS (2)
  - BENIGN NEOPLASM OF THYROID GLAND [None]
  - DRUG INEFFECTIVE [None]
